FAERS Safety Report 8075650-4 (Version None)
Quarter: 2012Q1

REPORT INFORMATION
  Report Type: 
  Country: None (occurrence: None)
  Receive Date: 20120127
  Receipt Date: 20120120
  Transmission Date: 20120608
  Serious: No
  Sender: FDA-Public Use
  Company Number: US-B.I. PHARMACEUTICALS,INC./RIDGEFIELD-2012-BP-01368BP

PATIENT
  Sex: Female

DRUGS (8)
  1. HYDROCODONE BITARTRATE AND ACETAMINOPHEN [Concomitant]
     Indication: ARTHRALGIA
     Route: 048
  2. PRADAXA [Suspect]
     Dosage: 150 MG
     Route: 048
  3. PRADAXA [Suspect]
     Indication: ATRIAL FIBRILLATION
     Dosage: 300 MG
     Route: 048
     Dates: start: 20110501
  4. METOPROLOL TARTRATE [Concomitant]
     Indication: HYPERTENSION
  5. BENAZEPRIL HYDROCHLORIDE [Concomitant]
     Indication: HYPERTENSION
     Route: 048
  6. GLYBURIDE [Concomitant]
     Indication: DIABETES MELLITUS
     Route: 048
  7. OMEPRAZOLE [Concomitant]
     Indication: GASTROOESOPHAGEAL REFLUX DISEASE
     Route: 048
  8. LEVOCETIRIZINE DIHYDROCHLORIDE [Concomitant]
     Indication: HYPERSENSITIVITY
     Route: 048

REACTIONS (7)
  - PULMONARY CONGESTION [None]
  - DYSPNOEA [None]
  - DIZZINESS [None]
  - WALKING AID USER [None]
  - BALANCE DISORDER [None]
  - CLUSTER HEADACHE [None]
  - DYSPEPSIA [None]
